FAERS Safety Report 6757564-2 (Version None)
Quarter: 2010Q2

REPORT INFORMATION
  Report Type: 
  Country: None (occurrence: None)
  Receive Date: 20100607
  Receipt Date: 20100525
  Transmission Date: 20101027
  Serious: Yes (Other)
  Sender: FDA-Public Use
  Company Number: US-ELI_LILLY_AND_COMPANY-US200910002489

PATIENT
  Sex: Female

DRUGS (12)
  1. FORTEO [Suspect]
     Indication: OSTEOPOROSIS
     Dosage: UNK, UNK
  2. SYNTHROID [Concomitant]
  3. ACYCLOVIR [Concomitant]
  4. CALCIUM CARBONATE [Concomitant]
  5. VITAMIN B COMPLEX CAP [Concomitant]
  6. VITAMINS [Concomitant]
  7. ASTELIN [Concomitant]
  8. SINGULAIR [Concomitant]
  9. CLARITIN [Concomitant]
  10. ZETIA [Concomitant]
  11. ASPIRIN [Concomitant]
  12. VITAMIN D [Concomitant]
     Dosage: 50 IU, WEEKLY (1/W)

REACTIONS (16)
  - ARRHYTHMIA [None]
  - ARTHRALGIA [None]
  - ARTHRITIS [None]
  - BLOOD PRESSURE DECREASED [None]
  - CARDIAC DISORDER [None]
  - DYSSTASIA [None]
  - FATIGUE [None]
  - FEELING ABNORMAL [None]
  - GROWING PAINS [None]
  - INJECTION SITE PRURITUS [None]
  - JOINT HYPEREXTENSION [None]
  - LIMB DISCOMFORT [None]
  - LOCAL SWELLING [None]
  - MUSCLE SPASMS [None]
  - MUSCULOSKELETAL DISCOMFORT [None]
  - TENDERNESS [None]
